FAERS Safety Report 9743271 (Version 1)
Quarter: 2013Q4

REPORT INFORMATION
  Report Type: Spontaneous
  Country: US (occurrence: US)
  Receive Date: 20131210
  Receipt Date: 20131210
  Transmission Date: 20140711
  Serious: Yes (Hospitalization)
  Sender: FDA-Public Use
  Company Number: US-GILEAD-2009-0025454

PATIENT
  Age: 59 Year
  Sex: Female

DRUGS (14)
  1. LETAIRIS [Suspect]
     Indication: PULMONARY ARTERIAL HYPERTENSION
     Route: 048
     Dates: start: 20090216
  2. MERCAPTOPURINE [Suspect]
     Dates: end: 200910
  3. ANAGRELIDE [Suspect]
  4. REVATIO [Concomitant]
  5. WARFARIN [Concomitant]
  6. LASIX [Concomitant]
  7. METOPROLOL [Concomitant]
  8. TIKOSYN [Concomitant]
  9. POTASSIUM [Concomitant]
  10. ASACOL [Concomitant]
  11. ZOLPIDEM [Concomitant]
  12. SINGULAIR [Concomitant]
  13. CITALOPRAM [Concomitant]
  14. LEVOTHYROXINE [Concomitant]

REACTIONS (1)
  - Anaemia [Recovered/Resolved]
